FAERS Safety Report 11599838 (Version 1)
Quarter: 2015Q3

REPORT INFORMATION
  Report Type: Spontaneous
  Country: US (occurrence: US)
  Receive Date: 20150916
  Receipt Date: 20150916
  Transmission Date: 20151125
  Serious: No
  Sender: FDA-Public Use
  Company Number: US-ELI_LILLY_AND_COMPANY-US200611000308

PATIENT
  Age: 72 Year
  Sex: Female

DRUGS (11)
  1. FORTEO [Suspect]
     Active Substance: TERIPARATIDE
     Dosage: UNK, QOD
     Route: 058
     Dates: start: 20080102
  2. FORTEO [Suspect]
     Active Substance: TERIPARATIDE
     Dosage: UNK, OTHER
  3. MULTIPLE VITAMINS [Concomitant]
     Active Substance: VITAMINS
     Indication: VITAMIN SUPPLEMENTATION
  4. FORTEO [Suspect]
     Active Substance: TERIPARATIDE
     Dosage: UNK, 2/W
     Dates: start: 20071031, end: 20071113
  5. FORTEO [Suspect]
     Active Substance: TERIPARATIDE
     Indication: OSTEOPOROSIS
     Dosage: UNK, UNK
     Dates: start: 20061030, end: 200611
  6. FORTEO [Suspect]
     Active Substance: TERIPARATIDE
     Dosage: UNK, 3/W
     Dates: start: 20071114, end: 2007
  7. FORTEO [Suspect]
     Active Substance: TERIPARATIDE
     Route: 058
     Dates: start: 2007, end: 200712
  8. CALCIUM [Concomitant]
     Active Substance: CALCIUM
     Indication: MINERAL SUPPLEMENTATION
  9. VITAMIN C [Concomitant]
     Active Substance: ASCORBIC ACID
     Indication: VITAMIN SUPPLEMENTATION
  10. FORTEO [Suspect]
     Active Substance: TERIPARATIDE
     Route: 058
     Dates: start: 200611, end: 200612
  11. BONIVA [Concomitant]
     Active Substance: IBANDRONATE SODIUM
     Dosage: EVERY 3 MONTHS
     Route: 042
     Dates: start: 200611

REACTIONS (11)
  - Nausea [Not Recovered/Not Resolved]
  - Spinal fracture [Unknown]
  - Balance disorder [Not Recovered/Not Resolved]
  - Hypersensitivity [Unknown]
  - Adverse drug reaction [Unknown]
  - Insomnia [Unknown]
  - Abnormal faeces [Unknown]
  - Dizziness [Not Recovered/Not Resolved]
  - Osteoporosis [Unknown]
  - Fracture [Unknown]
  - Muscle spasms [Recovered/Resolved]

NARRATIVE: CASE EVENT DATE: 2006
